FAERS Safety Report 23173814 (Version 1)
Quarter: 2023Q4

REPORT INFORMATION
  Report Type: Spontaneous
  Country: US (occurrence: US)
  Receive Date: 20231111
  Receipt Date: 20231111
  Transmission Date: 20240110
  Serious: Yes (Other)
  Sender: FDA-Public Use
  Company Number: US-SA-SAC20231110000531

PATIENT
  Age: 62 Year
  Sex: Female
  Weight: 84.8 kg

DRUGS (10)
  1. DUPIXENT [Suspect]
     Active Substance: DUPILUMAB
     Indication: Asthma
     Dosage: 600 MG, 1X
     Route: 058
     Dates: start: 20231104, end: 20231104
  2. BECLOMETHASONE DIPROPIONATE [Concomitant]
     Active Substance: BECLOMETHASONE DIPROPIONATE
  3. CALCIUM [Concomitant]
     Active Substance: CALCIUM
  4. VITAMIN D NOS [Concomitant]
     Active Substance: VITAMIN D NOS
  5. PRILOSEC [Concomitant]
     Active Substance: OMEPRAZOLE MAGNESIUM
  6. PREDNISONE [Concomitant]
     Active Substance: PREDNISONE
  7. TRELEGY ELLIPTA [Concomitant]
     Active Substance: FLUTICASONE FUROATE\UMECLIDINIUM BROMIDE\VILANTEROL TRIFENATATE
  8. ALBUTEROL SULFATE [Concomitant]
     Active Substance: ALBUTEROL SULFATE
  9. ALLOPURINOL [Concomitant]
     Active Substance: ALLOPURINOL
  10. CELECOXIB [Concomitant]
     Active Substance: CELECOXIB

REACTIONS (5)
  - Loss of consciousness [Unknown]
  - Orthostatic hypotension [Unknown]
  - Dehydration [Unknown]
  - Urinary tract infection [Unknown]
  - Fractured coccyx [Unknown]

NARRATIVE: CASE EVENT DATE: 20231105
